FAERS Safety Report 9200526 (Version 1)
Quarter: 2013Q1

REPORT INFORMATION
  Report Type: Report from Study
  Country: US (occurrence: US)
  Receive Date: 20130329
  Receipt Date: 20130329
  Transmission Date: 20140127
  Serious: Yes (Other)
  Sender: FDA-Public Use
  Company Number: US-ABBOTT-13P-163-1066456-00

PATIENT
  Age: 74 Year
  Sex: Female

DRUGS (30)
  1. HUMIRA [Suspect]
     Indication: PSORIATIC ARTHROPATHY
     Dates: end: 20130115
  2. AMLODIPINE [Concomitant]
     Indication: HYPERTENSION
  3. BENAZEPRIL [Concomitant]
     Indication: HYPERTENSION
  4. GENERIC LASIX [Concomitant]
     Indication: PRODUCT USED FOR UNKNOWN INDICATION
     Dosage: HALF TABLET DAILY
  5. TRIAMTERENE/HCTZ [Concomitant]
     Indication: PRODUCT USED FOR UNKNOWN INDICATION
     Dosage: HALF PILL 75 MG/50 MG
  6. POTASSIUM CHLORIDE [Concomitant]
     Indication: FLUID REPLACEMENT
  7. METFORMIN [Concomitant]
     Indication: PRODUCT USED FOR UNKNOWN INDICATION
  8. OMEPRAZOLE [Concomitant]
     Indication: PRODUCT USED FOR UNKNOWN INDICATION
     Dosage: 20 MG DAILY
  9. CRESTOR [Concomitant]
     Indication: PRODUCT USED FOR UNKNOWN INDICATION
  10. ALBUTEROL [Concomitant]
     Indication: TOBACCO USER
     Dosage: INHALER AS NEEDED
  11. BABY ASPIRIN [Concomitant]
     Indication: PRODUCT USED FOR UNKNOWN INDICATION
     Dosage: DAILY
  12. ASCORBIC ACID [Concomitant]
     Indication: PRODUCT USED FOR UNKNOWN INDICATION
     Dosage: HALF TABLET DAILY
  13. CARBONATE VITAMIN D3 [Concomitant]
     Indication: PRODUCT USED FOR UNKNOWN INDICATION
  14. FLONASE [Concomitant]
     Indication: PRODUCT USED FOR UNKNOWN INDICATION
     Dosage: 1 SPRAY TWICE DAILY
  15. FOLIC ACID [Concomitant]
     Indication: PRODUCT USED FOR UNKNOWN INDICATION
     Dosage: 1 MG DAILY
  16. MELOXICAM [Concomitant]
     Indication: PRODUCT USED FOR UNKNOWN INDICATION
     Dosage: 7.5 MG DAILY
  17. MICONAZOLE NITRATE [Concomitant]
     Indication: MILIARIA
  18. NYSTATIN [Concomitant]
     Indication: MILIARIA
     Dosage: POWDER AS NEEDED
  19. MULTIVITAMIN [Concomitant]
     Indication: PRODUCT USED FOR UNKNOWN INDICATION
     Dosage: DAILY
  20. NEOSPORIN PAIN RELIEF [Concomitant]
     Indication: PRODUCT USED FOR UNKNOWN INDICATION
  21. GABAPENTIN [Concomitant]
     Indication: NERVE COMPRESSION
  22. LEVOTHYROXINE [Concomitant]
     Indication: PRODUCT USED FOR UNKNOWN INDICATION
     Dosage: 125 MCG DAILY
  23. SERTRALINE [Concomitant]
     Indication: PRODUCT USED FOR UNKNOWN INDICATION
  24. LORAZEPAM [Concomitant]
     Indication: PRODUCT USED FOR UNKNOWN INDICATION
  25. AMBIEN [Concomitant]
     Indication: DEPRESSION
     Dosage: AT NIGHT
  26. AMBIEN [Concomitant]
     Indication: ANXIETY
  27. CPAP MACHINE [Concomitant]
     Indication: SLEEP APNOEA SYNDROME
  28. METHOTREXATE [Concomitant]
     Indication: PRODUCT USED FOR UNKNOWN INDICATION
     Dosage: 8 TABLETS EVERY TUESDAY
  29. NORTRIPTYLINE HCL [Concomitant]
     Indication: DEPRESSION
  30. NORTRIPTYLINE HCL [Concomitant]
     Indication: BEREAVEMENT

REACTIONS (7)
  - Breast calcifications [Not Recovered/Not Resolved]
  - Scar [Not Recovered/Not Resolved]
  - Cataract operation [Unknown]
  - Depression [Unknown]
  - Psoriatic arthropathy [Unknown]
  - Weight decreased [Unknown]
  - Wound infection bacterial [Unknown]
